FAERS Safety Report 6013378-2 (Version None)
Quarter: 2008Q4

REPORT INFORMATION
  Report Type: 
  Country: None (occurrence: None)
  Receive Date: 20081126
  Receipt Date: 20080505
  Transmission Date: 20090506
  Serious: Yes (Other)
  Sender: FDA-Public Use
  Company Number: 168912USA

PATIENT
  Age: 49 Year
  Sex: Female
  Weight: 109.8 kg

DRUGS (4)
  1. CALCITRIOL [Suspect]
     Indication: HYPOPARATHYROIDISM
     Dosage: (0.25 MCG), ORAL
     Route: 048
  2. CALCIUM CARBONATE [Concomitant]
  3. ESOMEPRAZOLE MAGNESIUM [Concomitant]
  4. MOMETASONE FUROATE [Concomitant]

REACTIONS (3)
  - CONDITION AGGRAVATED [None]
  - DRUG INEFFECTIVE [None]
  - HYPOCALCAEMIA [None]
